FAERS Safety Report 17216666 (Version 1)
Quarter: 2019Q4

REPORT INFORMATION
  Report Type: Report from Study
  Country: ES (occurrence: ES)
  Receive Date: 20191230
  Receipt Date: 20191230
  Transmission Date: 20200122
  Serious: Yes (Hospitalization)
  Sender: FDA-Public Use
  Company Number: ES-TEVA-2019-ES-1159516

PATIENT
  Age: 65 Year
  Sex: Female

DRUGS (4)
  1. ALOPURINOL (318A) [Concomitant]
     Active Substance: ALLOPURINOL
     Indication: ARTHRALGIA
     Route: 048
     Dates: start: 20170222
  2. ALDOCUMAR 1 MG COMPRIMIDOS, 40 COMPRIMIDOS [Concomitant]
     Active Substance: WARFARIN SODIUM
     Indication: ATRIAL FIBRILLATION
     Route: 048
     Dates: start: 20120413
  3. EPLERENONA (2924A) [Concomitant]
     Active Substance: EPLERENONE
     Indication: HYPERTENSION
     Dosage: 25 MG
     Route: 048
     Dates: start: 2015, end: 20171208
  4. METOTREXATO (418A) [Suspect]
     Active Substance: METHOTREXATE
     Indication: PSORIASIS
     Dosage: 10 MG
     Route: 058
     Dates: start: 20171010, end: 20171208

REACTIONS (2)
  - Normocytic anaemia [Recovering/Resolving]
  - Acute kidney injury [Recovering/Resolving]

NARRATIVE: CASE EVENT DATE: 20171201
